FAERS Safety Report 21371005 (Version 1)
Quarter: 2022Q3

REPORT INFORMATION
  Report Type: Other
  Country: DE (occurrence: DE)
  Receive Date: 20220923
  Receipt Date: 20220923
  Transmission Date: 20221027
  Serious: Yes (Other)
  Sender: FDA-Public Use
  Company Number: None

PATIENT
  Age: 28 Year
  Sex: Male
  Weight: 60 kg

DRUGS (3)
  1. IOHEXOL [Suspect]
     Active Substance: IOHEXOL
     Indication: Diagnostic procedure
     Dosage: 90 ML, SINGLE
     Route: 042
     Dates: start: 20220707, end: 20220707
  2. IOHEXOL [Suspect]
     Active Substance: IOHEXOL
     Indication: Lymphadenopathy
  3. IOHEXOL [Suspect]
     Active Substance: IOHEXOL
     Indication: Lung neoplasm malignant

REACTIONS (5)
  - Tardive dyskinesia [Recovered/Resolved]
  - Dyskinesia [Recovered/Resolved]
  - Mastication disorder [Recovered/Resolved]
  - Tremor [Recovered/Resolved]
  - Nausea [Recovered/Resolved]

NARRATIVE: CASE EVENT DATE: 20220707
